FAERS Safety Report 24107130 (Version 1)
Quarter: 2024Q3

REPORT INFORMATION
  Report Type: Spontaneous
  Country: IN (occurrence: IN)
  Receive Date: 20240718
  Receipt Date: 20240718
  Transmission Date: 20241017
  Serious: Yes (Other)
  Sender: CIPLA
  Company Number: IN-CIPLA LTD.-2024IN07427

PATIENT

DRUGS (1)
  1. DICLOFENAC [Suspect]
     Active Substance: DICLOFENAC
     Indication: Product used for unknown indication
     Dosage: UNK
     Route: 030

REACTIONS (7)
  - Gangrene [Unknown]
  - Rash erythematous [Recovered/Resolved]
  - Peripheral sensory neuropathy [Unknown]
  - Skin discolouration [Not Recovered/Not Resolved]
  - Pain in extremity [Unknown]
  - Incorrect route of product administration [Unknown]
  - Peripheral swelling [Unknown]
